FAERS Safety Report 12481093 (Version 1)
Quarter: 2016Q2

REPORT INFORMATION
  Report Type: Spontaneous
  Country: US (occurrence: US)
  Receive Date: 20160620
  Receipt Date: 20160620
  Transmission Date: 20160815
  Serious: Yes (Other)
  Sender: FDA-Public Use
  Company Number: US-PERRIGO-16US017001

PATIENT
  Sex: Male
  Weight: 117.91 kg

DRUGS (2)
  1. OXYMETAZOLINE HYDROCHLORIDE 0.05% 329 [Suspect]
     Active Substance: OXYMETAZOLINE HYDROCHLORIDE
     Indication: NASAL CONGESTION
     Dosage: 1 TO 2 SPRAYS, BID, EVERY 12 HOURS, PRN IN EACH NOSTRIL
     Route: 045
     Dates: end: 201401
  2. OXYMETAZOLINE HYDROCHLORIDE 0.05% 329 [Suspect]
     Active Substance: OXYMETAZOLINE HYDROCHLORIDE
     Indication: SINUS HEADACHE

REACTIONS (5)
  - Tolosa-Hunt syndrome [Recovered/Resolved]
  - Eye disorder [Recovered/Resolved]
  - Underdose [Recovered/Resolved]
  - Facial paralysis [Recovered/Resolved]
  - Off label use [Recovered/Resolved]

NARRATIVE: CASE EVENT DATE: 2002
